FAERS Safety Report 14148610 (Version 1)
Quarter: 2017Q4

REPORT INFORMATION
  Report Type: Spontaneous
  Country: US (occurrence: US)
  Receive Date: 20171031
  Receipt Date: 20171031
  Transmission Date: 20180321
  Serious: No
  Sender: FDA-Public Use
  Company Number: None

PATIENT
  Age: 68 Year
  Sex: Male
  Weight: 121.5 kg

DRUGS (4)
  1. CVS BRAND GLUOSAMINE CHONDROITIN WITH MSM [Concomitant]
  2. CENTRUM 50+ VITAMIN [Concomitant]
  3. PAIN RELIEF PM [Suspect]
     Active Substance: ACETAMINOPHEN\DIPHENHYDRAMINE HYDROCHLORIDE
     Indication: ARTHRALGIA
     Dosage: ?          QUANTITY:2 CAPSULE(S);?
     Route: 048
     Dates: start: 20171030, end: 20171031
  4. TUMERIC+COQ10 [Concomitant]

REACTIONS (2)
  - Product quality issue [None]
  - Somnolence [None]

NARRATIVE: CASE EVENT DATE: 20171030
